FAERS Safety Report 5118949-3 (Version None)
Quarter: 2006Q3

REPORT INFORMATION
  Report Type: 
  Country: None (occurrence: None)
  Receive Date: 20060927
  Receipt Date: 20060919
  Transmission Date: 20061208
  Serious: Yes (Other)
  Sender: FDA-Public Use
  Company Number: 230070

PATIENT
  Age: 55 Year
  Sex: Male
  Weight: 93 kg

DRUGS (4)
  1. AVASTIN [Suspect]
     Indication: SMALL CELL LUNG CANCER STAGE UNSPECIFIED
  2. ERLOTINIB (ERLOTINIB) TABLET [Suspect]
     Indication: SMALL CELL LUNG CANCER STAGE UNSPECIFIED
  3. CARBOPLATIN [Suspect]
     Indication: SMALL CELL LUNG CANCER STAGE UNSPECIFIED
  4. PACLITAXEL [Suspect]
     Indication: SMALL CELL LUNG CANCER STAGE UNSPECIFIED

REACTIONS (2)
  - CYTOMEGALOVIRUS TEST POSITIVE [None]
  - OESOPHAGITIS [None]
